FAERS Safety Report 9073523 (Version 1)
Quarter: 2013Q1

REPORT INFORMATION
  Report Type: Report from Study
  Country: US (occurrence: US)
  Receive Date: 20130129
  Receipt Date: 20130129
  Transmission Date: 20140127
  Serious: No
  Sender: FDA-Public Use
  Company Number: US-ABBOTT-12P-163-0933717-00

PATIENT
  Age: 68 Year
  Sex: Male

DRUGS (11)
  1. HUMIRA 40 MG/ 0.8 ML PRE-FILLED SYRINGE [Suspect]
     Indication: RHEUMATOID ARTHRITIS
     Route: 058
     Dates: start: 200911, end: 201111
  2. PLAVIX [Concomitant]
     Indication: CARDIAC DISORDER
  3. CELEBREX [Concomitant]
     Indication: OSTEOARTHRITIS
  4. CELEBREX [Concomitant]
     Indication: RHEUMATOID ARTHRITIS
  5. OXYCONTIN [Concomitant]
     Indication: OSTEOARTHRITIS
  6. OXYCONTIN [Concomitant]
     Indication: RHEUMATOID ARTHRITIS
  7. INSULIN [Concomitant]
     Indication: TYPE 2 DIABETES MELLITUS
  8. XANAX [Concomitant]
     Indication: DEPRESSION
  9. XANAX [Concomitant]
     Indication: ANXIETY
  10. PAXIL [Concomitant]
     Indication: DEPRESSION
  11. PAXIL [Concomitant]
     Indication: ANXIETY

REACTIONS (2)
  - Drug ineffective [Recovering/Resolving]
  - Rheumatoid arthritis [Recovering/Resolving]
